FAERS Safety Report 8141316-5 (Version None)
Quarter: 2012Q1

REPORT INFORMATION
  Report Type: 
  Country: None (occurrence: None)
  Receive Date: 20120216
  Receipt Date: 20120206
  Transmission Date: 20120608
  Serious: Yes (Life-Threatening, Hospitalization, Other)
  Sender: FDA-Public Use
  Company Number: FR-ELI_LILLY_AND_COMPANY-FR201202001517

PATIENT
  Age: 35 Year
  Sex: Male

DRUGS (2)
  1. CODOLIPRANE [Concomitant]
  2. CYMBALTA [Suspect]
     Indication: DEPRESSION
     Dosage: UNK
     Route: 048
     Dates: start: 20070101, end: 20111101

REACTIONS (11)
  - SPINAL COMPRESSION FRACTURE [None]
  - OSTEOPOROSIS [None]
  - DYSKINESIA [None]
  - MYOCLONUS [None]
  - NAUSEA [None]
  - GRAND MAL CONVULSION [None]
  - CONVULSION [None]
  - MIGRAINE [None]
  - VOMITING [None]
  - CROHN'S DISEASE [None]
  - MALNUTRITION [None]
